FAERS Safety Report 10053166 (Version 1)
Quarter: 2014Q2

REPORT INFORMATION
  Report Type: Spontaneous
  Country: US (occurrence: US)
  Receive Date: 20140402
  Receipt Date: 20140402
  Transmission Date: 20141212
  Serious: Yes (Hospitalization, Other)
  Sender: FDA-Public Use
  Company Number: US-SHIRE-US201400756

PATIENT
  Sex: Male

DRUGS (6)
  1. VYVANSE [Suspect]
     Indication: ADJUSTMENT DISORDER
     Dosage: 20 MG, UNKNOWN
     Route: 048
     Dates: start: 2011
  2. VYVANSE [Suspect]
     Dosage: 30 MG, UNKNOWN
     Route: 048
  3. VYVANSE [Suspect]
     Dosage: 40 MG, UNKNOWN
     Route: 048
  4. VYVANSE [Suspect]
     Dosage: 50 MG, UNKNOWN
     Route: 048
  5. VYVANSE [Suspect]
     Dosage: UNK
  6. CLONAZEPAM [Concomitant]
     Indication: ANXIETY
     Dosage: 0.5 MG, UNKNOWN
     Route: 065

REACTIONS (7)
  - Substance-induced psychotic disorder [Not Recovered/Not Resolved]
  - Substance abuse [Not Recovered/Not Resolved]
  - Hallucination [Recovered/Resolved]
  - Hallucination, auditory [Recovered/Resolved]
  - Urinary tract infection [Recovered/Resolved]
  - Acne [Not Recovered/Not Resolved]
  - Off label use [Not Recovered/Not Resolved]
